FAERS Safety Report 4329465-0 (Version None)
Quarter: 2004Q1

REPORT INFORMATION
  Report Type: 
  Country: None (occurrence: None)
  Receive Date: 20040331
  Receipt Date: 20040331
  Transmission Date: 20041129
  Serious: Yes (Life-Threatening, Hospitalization)
  Sender: FDA-Public Use
  Company Number: None

PATIENT
  Age: 70 Year
  Sex: Female
  Weight: 59 kg

DRUGS (3)
  1. COUMADIN [Suspect]
     Indication: ATRIAL FIBRILLATION
     Dosage: 5 MG PO Q DAY
     Route: 048
     Dates: start: 20020901
  2. VITAMIN K TAB [Suspect]
     Indication: HYPERCOAGULATION
     Dosage: 1 MG IV (6 HAD BEEN ORDERED)
     Route: 042
     Dates: start: 20021014
  3. PREDNISONE [Suspect]
     Indication: CHRONIC OBSTRUCTIVE AIRWAYS DISEASE

REACTIONS (10)
  - ANAPHYLACTIC REACTION [None]
  - CHEST PAIN [None]
  - CHRONIC OBSTRUCTIVE AIRWAYS DISEASE [None]
  - COMA [None]
  - CONVULSION [None]
  - FRACTURE [None]
  - GASTROINTESTINAL HAEMORRHAGE [None]
  - HYPERCOAGULATION [None]
  - HYPOTENSION [None]
  - WHEEZING [None]
